FAERS Safety Report 7994527-3 (Version None)
Quarter: 2011Q4

REPORT INFORMATION
  Report Type: 
  Country: None (occurrence: None)
  Receive Date: 20111217
  Receipt Date: 20111217
  Transmission Date: 20120403
  Serious: Yes (Hospitalization)
  Sender: FDA-Public Use
  Company Number: None

PATIENT
  Sex: Female
  Weight: 70 kg

DRUGS (3)
  1. PEMETREXED [Suspect]
     Dosage: 870 MG
     Dates: end: 20110915
  2. CISPLATIN [Suspect]
     Dosage: 131 MG
     Dates: end: 20110915
  3. METROPOLAL [Concomitant]

REACTIONS (1)
  - SYNCOPE [None]
